FAERS Safety Report 11059761 (Version 1)
Quarter: 2015Q2

REPORT INFORMATION
  Report Type: Spontaneous
  Country: US (occurrence: US)
  Receive Date: 20150423
  Receipt Date: 20150423
  Transmission Date: 20150821
  Serious: No
  Sender: FDA-Public Use
  Company Number: US-BIOMARINAP-US-2015-106129

PATIENT
  Age: 17 Year
  Sex: Female
  Weight: 66 kg

DRUGS (1)
  1. NAGLAZYME [Suspect]
     Active Substance: GALSULFASE
     Indication: MUCOPOLYSACCHARIDOSIS VI
     Dosage: UNK, QW
     Route: 042
     Dates: start: 20080201

REACTIONS (3)
  - Tremor [Unknown]
  - Cyanosis [Unknown]
  - Serratia infection [Unknown]

NARRATIVE: CASE EVENT DATE: 20150328
